FAERS Safety Report 9798505 (Version 1)
Quarter: 2014Q1

REPORT INFORMATION
  Report Type: Spontaneous
  Country: US (occurrence: US)
  Receive Date: 20140106
  Receipt Date: 20140106
  Transmission Date: 20141002
  Serious: Yes (Other)
  Sender: FDA-Public Use
  Company Number: US-BAYER-2013-159217

PATIENT
  Age: 22 Year
  Sex: Female
  Weight: 83.9 kg

DRUGS (1)
  1. ALEVE TABLET [Suspect]
     Route: 048

REACTIONS (1)
  - Intentional overdose [None]
